FAERS Safety Report 9660930 (Version 2)
Quarter: 2013Q4

REPORT INFORMATION
  Report Type: Spontaneous
  Country: BR (occurrence: BR)
  Receive Date: 20131031
  Receipt Date: 20131119
  Transmission Date: 20140711
  Serious: Yes (Other)
  Sender: FDA-Public Use
  Company Number: BR-JNJFOC-20131016337

PATIENT
  Age: 32 Year
  Sex: Female
  Weight: 57 kg

DRUGS (2)
  1. REMICADE [Suspect]
     Indication: CROHN^S DISEASE
     Dosage: FIRST DOSE
     Route: 042
     Dates: start: 20130822
  2. UNKNOWN MEDICATION [Concomitant]
     Indication: CONTRACEPTION
     Route: 065

REACTIONS (6)
  - Tonsillitis [Recovered/Resolved]
  - Decreased immune responsiveness [Recovering/Resolving]
  - Laboratory test abnormal [Unknown]
  - Blood pressure decreased [Recovered/Resolved]
  - Pain [Recovered/Resolved]
  - Headache [Recovered/Resolved]
